FAERS Safety Report 4682678-0 (Version None)
Quarter: 2005Q2

REPORT INFORMATION
  Report Type: 
  Country: None (occurrence: None)
  Receive Date: 20050606
  Receipt Date: 20050524
  Transmission Date: 20051028
  Serious: Yes (Other)
  Sender: FDA-Public Use
  Company Number: IE-GLAXOSMITHKLINE-B0383004A

PATIENT
  Age: 54 Year
  Sex: Male

DRUGS (5)
  1. AUGMENTIN '125' [Suspect]
  2. ANTI-HISTAMINE TAB [Concomitant]
  3. BETNOVATE [Concomitant]
     Route: 061
  4. XYZAL [Concomitant]
     Dosage: 5MG PER DAY
     Route: 048
  5. SILCOCK'S BASE [Concomitant]
     Route: 061

REACTIONS (6)
  - ANAPHYLACTIC REACTION [None]
  - DYSPNOEA [None]
  - FEELING HOT [None]
  - HYPERHIDROSIS [None]
  - HYPERSENSITIVITY [None]
  - THROAT TIGHTNESS [None]
